FAERS Safety Report 8978518 (Version 1)
Quarter: 2012Q4

REPORT INFORMATION
  Report Type: Report from Study
  Country: SE (occurrence: SE)
  Receive Date: 20121220
  Receipt Date: 20121220
  Transmission Date: 20130627
  Serious: Yes (Other)
  Sender: FDA-Public Use
  Company Number: SE-BAXTER-2012BAX027372

PATIENT
  Age: 34 Year
  Sex: Female

DRUGS (5)
  1. SENDOXAN [Suspect]
     Indication: BREAST CANCER
     Route: 042
     Dates: start: 20081217, end: 20090129
  2. BEVACIZUMAB [Suspect]
     Indication: BREAST CANCER
     Route: 042
     Dates: start: 20081217, end: 20090402
  3. FLUOROURACIL [Suspect]
     Indication: BREAST CANCER
     Route: 042
     Dates: start: 20081217, end: 20090129
  4. EPIRUBICIN [Suspect]
     Indication: BREAST CANCER
     Route: 042
     Dates: start: 20081217, end: 20090129
  5. DOCETAXEL [Suspect]
     Indication: BREAST CANCER
     Route: 042
     Dates: start: 20090219, end: 20090402

REACTIONS (3)
  - Maternal exposure before pregnancy [Unknown]
  - Normal newborn [Unknown]
  - No adverse event [Recovered/Resolved]
